FAERS Safety Report 8452369 (Version 2)
Quarter: 2012Q4

REPORT INFORMATION
  Report Type: 
  Country: US (occurrence: US)
  Receive Date: 20120312
  Receipt Date: 20120906
  Transmission Date: 20130627
  Serious: No
  Sender: FDA-Public Use
  Company Number: US-BIOGENIDEC-2012BI008254

PATIENT
  Age: 44 Year
  Sex: Female

DRUGS (6)
  1. TYSABRI [Suspect]
     Indication: MULTIPLE SCLEROSIS
     Route: 042
     Dates: start: 20111118, end: 20111222
  2. BACLOFEN [Concomitant]
     Route: 048
  3. BETASERON [Concomitant]
     Indication: MULTIPLE SCLEROSIS
     Route: 058
  4. METHYLPHENIDATE [Concomitant]
     Route: 048
  5. OXYBUTYNIN [Concomitant]
     Route: 048
  6. HYDROCODONE-ACETAMINOPHEN [Concomitant]
     Dosage: Dose unit:1
     Route: 048

REACTIONS (2)
  - Hypersensitivity [Recovered/Resolved]
  - Drug specific antibody present [Unknown]
